FAERS Safety Report 6835581-1 (Version None)
Quarter: 2010Q3

REPORT INFORMATION
  Report Type: 
  Country: None (occurrence: None)
  Receive Date: 20100713
  Receipt Date: 20100701
  Transmission Date: 20110219
  Serious: No
  Sender: FDA-Public Use
  Company Number: US-ELI_LILLY_AND_COMPANY-US200907003067

PATIENT
  Sex: Female

DRUGS (2)
  1. FORTEO [Suspect]
     Indication: OSTEOPOROSIS
  2. COUMADIN [Concomitant]

REACTIONS (6)
  - GAIT DISTURBANCE [None]
  - MUSCULAR WEAKNESS [None]
  - MUSCULOSKELETAL DISCOMFORT [None]
  - NAUSEA [None]
  - PAIN [None]
  - SLEEP DISORDER DUE TO A GENERAL MEDICAL CONDITION [None]
